FAERS Safety Report 5574494-2 (Version None)
Quarter: 2007Q4

REPORT INFORMATION
  Report Type: 
  Country: None (occurrence: None)
  Receive Date: 20071227
  Receipt Date: 20071218
  Transmission Date: 20080405
  Serious: Yes (Other)
  Sender: FDA-Public Use
  Company Number: US-JNJFOC-20071205173

PATIENT
  Age: 26 Year
  Sex: Female
  Weight: 55.34 kg

DRUGS (3)
  1. TYLENOL COLD MULTI-SYMPTOM DAYTIME RAPID RELEASE [Suspect]
     Indication: NASOPHARYNGITIS
     Dosage: 2 DOSES EVERY 4-6 HOURS (AS NECESSARY)
  2. BIRTH CONTROL [Concomitant]
  3. ALBUTEROL [Concomitant]
     Indication: ASTHMA

REACTIONS (5)
  - AMNESIA [None]
  - DRUG SCREEN POSITIVE [None]
  - HYPOAESTHESIA [None]
  - MEDICATION TAMPERING [None]
  - PARAESTHESIA [None]
